FAERS Safety Report 5337600-0 (Version None)
Quarter: 2007Q2

REPORT INFORMATION
  Report Type: 
  Country: None (occurrence: None)
  Receive Date: 20070309
  Receipt Date: 20060724
  Transmission Date: 20071010
  Serious: Yes (Life-Threatening, Hospitalization)
  Sender: FDA-Public Use
  Company Number: US200607004119

PATIENT
  Age: 67 Year
  Sex: Male

DRUGS (6)
  1. GEMZAR [Suspect]
     Indication: HEPATIC NEOPLASM MALIGNANT
     Dosage: INTRAVENOUS
     Route: 042
     Dates: start: 20060207
  2. ELOXATIN                    / GFR/(OXALIPLATIN) SOLUTION [Concomitant]
  3. COUMADIN [Concomitant]
  4. CARAVEDILOL (CARVEDILOL) TABLET [Concomitant]
  5. ENALAPRIL MALEATE [Concomitant]
  6. DIGOXIN [Concomitant]

REACTIONS (1)
  - ANAPHYLACTIC REACTION [None]
